FAERS Safety Report 4625162-2 (Version None)
Quarter: 2005Q2

REPORT INFORMATION
  Report Type: 
  Country: None (occurrence: None)
  Receive Date: 20050325
  Receipt Date: 20050119
  Transmission Date: 20051028
  Serious: No
  Sender: FDA-Public Use
  Company Number: USA050188722

PATIENT
  Age: 74 Year
  Sex: Female
  Weight: 74 kg

DRUGS (2)
  1. FORTEO [Suspect]
     Indication: OSTEOPOROSIS
     Dates: start: 20041201
  2. CALCIUM WITH VITAMIN D [Concomitant]

REACTIONS (3)
  - BODY HEIGHT DECREASED [None]
  - EXOSTOSIS [None]
  - PALPITATIONS [None]
